FAERS Safety Report 20077288 (Version 1)
Quarter: 2021Q4

REPORT INFORMATION
  Report Type: Spontaneous
  Country: US (occurrence: US)
  Receive Date: 20211116
  Receipt Date: 20211116
  Transmission Date: 20220303
  Serious: No
  Sender: FDA-Public Use
  Company Number: US-KALA PHARAMACEUTICALS-2021KLA00078

PATIENT
  Age: 67 Year
  Sex: Female

DRUGS (4)
  1. EYSUVIS [Suspect]
     Active Substance: LOTEPREDNOL ETABONATE
     Indication: Dry eye
     Dosage: 1 DROP, 4X/DAY IN BOTH EYES
     Route: 047
     Dates: start: 20210727, end: 20210729
  2. OASIS PRESERVATIVE-FREE ARTIFICIAL TEARS [Concomitant]
  3. CEQUA [Concomitant]
     Active Substance: CYCLOSPORINE
     Dosage: UNK, 2X/DAY IN BOTH EYES
  4. NORDIC NATURALS OMEGA SUPPLEMENTS [Concomitant]

REACTIONS (4)
  - Eye irritation [Recovered/Resolved]
  - Dry eye [Recovering/Resolving]
  - Drug ineffective [Recovered/Resolved]
  - Eye pain [Recovering/Resolving]

NARRATIVE: CASE EVENT DATE: 20210701
